FAERS Safety Report 24299490 (Version 1)
Quarter: 2024Q3

REPORT INFORMATION
  Report Type: Report from Study
  Country: JP (occurrence: JP)
  Receive Date: 20240909
  Receipt Date: 20240909
  Transmission Date: 20241017
  Serious: Yes (Death, Other)
  Sender: OTSUKA
  Company Number: JP-OTSUKA-2024_024670

PATIENT
  Age: 87 Year
  Sex: Male
  Weight: 68.5 kg

DRUGS (12)
  1. TOLVAPTAN [Suspect]
     Active Substance: TOLVAPTAN
     Indication: Cardiac failure
     Dosage: 8 MG/DAY, ONCE DAILY
     Route: 041
     Dates: start: 20240719, end: 20240723
  2. TOLVAPTAN [Suspect]
     Active Substance: TOLVAPTAN
     Indication: Fluid retention
  3. TOLVAPTAN [Suspect]
     Active Substance: TOLVAPTAN
     Indication: Product used for unknown indication
     Dosage: 2 TABLETS/DAY
     Route: 048
     Dates: start: 20240729, end: 20240805
  4. TOLVAPTAN [Suspect]
     Active Substance: TOLVAPTAN
     Dosage: 1 TABLET/DAY
     Route: 048
     Dates: start: 20240716, end: 20240728
  5. FUROSEMIDE [Concomitant]
     Active Substance: FUROSEMIDE
     Indication: Product used for unknown indication
     Dosage: 0.5 AMPOULES/DAY
     Route: 050
     Dates: start: 20240716, end: 20240804
  6. WARFARIN POTASSIUM [Concomitant]
     Active Substance: WARFARIN POTASSIUM
     Indication: Thrombosis prophylaxis
     Dosage: 2 TABLETS
     Route: 048
     Dates: start: 20240716, end: 20240718
  7. MIYA-BM [Concomitant]
     Active Substance: CLOSTRIDIUM BUTYRICUM SPORES STRAIN M-55
     Indication: Product used for unknown indication
     Dosage: UNK
     Route: 048
     Dates: end: 20240805
  8. FEBUXOSTAT [Concomitant]
     Active Substance: FEBUXOSTAT
     Indication: Hyperuricaemia
     Dosage: UNK
     Route: 048
     Dates: end: 20240805
  9. ESOMEPRAZOLE MAGNESIUM [Concomitant]
     Active Substance: ESOMEPRAZOLE MAGNESIUM
     Indication: Hyperchlorhydria
     Dosage: UNK
     Route: 048
     Dates: end: 20240805
  10. DUTASTERIDE [Concomitant]
     Active Substance: DUTASTERIDE
     Indication: Benign prostatic hyperplasia
     Dosage: UNK
     Route: 048
     Dates: end: 20240805
  11. LEVOTHYROXINE SODIUM [Concomitant]
     Active Substance: LEVOTHYROXINE SODIUM
     Indication: Hypothyroidism
     Dosage: UNK
     Route: 048
     Dates: end: 20240805
  12. QUETIAPINE FUMARATE [Concomitant]
     Active Substance: QUETIAPINE FUMARATE
     Indication: Schizophrenia
     Dosage: 3 TABLETS
     Route: 048
     Dates: end: 20240805

REACTIONS (8)
  - Death [Fatal]
  - Bipolar I disorder [Unknown]
  - Chronic kidney disease [Unknown]
  - Hyperkalaemia [Unknown]
  - Psychotic disorder [Unknown]
  - Anaemia [Unknown]
  - Dehydration [Unknown]
  - Drug monitoring procedure incorrectly performed [Unknown]

NARRATIVE: CASE EVENT DATE: 20240719
